FAERS Safety Report 20631281 (Version 1)
Quarter: 2022Q1

REPORT INFORMATION
  Report Type: Spontaneous
  Country: US (occurrence: None)
  Receive Date: 20220323
  Receipt Date: 20220323
  Transmission Date: 20220424
  Serious: Yes (Hospitalization)
  Sender: FDA-Public Use
  Company Number: None

PATIENT
  Sex: Male

DRUGS (2)
  1. GAMMAGARD LIQUID [Suspect]
     Active Substance: HUMAN IMMUNOGLOBULIN G
     Indication: Selective IgG subclass deficiency
     Dosage: 3 GM WEEKLY IV?
     Route: 042
     Dates: start: 202110
  2. 2-HYDROXYETHYL METHACRYLATE\DEVICE [Suspect]
     Active Substance: 2-HYDROXYETHYL METHACRYLATE\DEVICE
     Indication: Selective IgG subclass deficiency
     Dosage: 1 PATCH ONE TIME TOPICALLY?
     Route: 061
     Dates: start: 202203

REACTIONS (3)
  - Anaphylactic reaction [None]
  - Complication associated with device [None]
  - Therapy interrupted [None]
